FAERS Safety Report 25866288 (Version 2)
Quarter: 2025Q4

REPORT INFORMATION
  Report Type: Report from Study
  Country: US (occurrence: US)
  Receive Date: 20250930
  Receipt Date: 20251222
  Transmission Date: 20260118
  Serious: No
  Sender: AGIOS PHARMACEUTICALS
  Company Number: US-AGIOS-2509US04486

PATIENT
  Age: 48 Year
  Sex: Male

DRUGS (1)
  1. MITAPIVAT [Suspect]
     Active Substance: MITAPIVAT
     Indication: Pyruvate kinase deficiency anaemia
     Dosage: 40 MILLIGRAM, BID
     Route: 048
     Dates: start: 20241026

REACTIONS (3)
  - Product dose omission issue [Unknown]
  - Product dose omission in error [Unknown]
  - Memory impairment [Unknown]
